FAERS Safety Report 25173399 (Version 1)
Quarter: 2025Q2

REPORT INFORMATION
  Report Type: Report from Study
  Country: US (occurrence: US)
  Receive Date: 20250408
  Receipt Date: 20250408
  Transmission Date: 20250716
  Serious: Yes (Hospitalization)
  Sender: PFIZER
  Company Number: US-002147023-PHHO2003US08773

PATIENT
  Age: 72 Year
  Sex: Female

DRUGS (15)
  1. METHOTREXATE SODIUM [Suspect]
     Active Substance: METHOTREXATE SODIUM
  2. CYTARABINE [Suspect]
     Active Substance: CYTARABINE
  3. IMATINIB [Suspect]
     Active Substance: IMATINIB
     Indication: Acute lymphocytic leukaemia
     Dosage: 400 MG, 1X/DAY (STI571/CGP57148B T35717+CAPS)
     Route: 048
     Dates: start: 20030625, end: 20030714
  4. IMATINIB [Suspect]
     Active Substance: IMATINIB
     Dosage: 400 MG, 1X/DAY (STI571/CGP57148B T35717+CAPS)
     Route: 048
     Dates: start: 20030813, end: 20030826
  5. METHYLPREDNISOLONE [Concomitant]
     Active Substance: METHYLPREDNISOLONE
  6. VALTREX [Concomitant]
     Active Substance: VALACYCLOVIR HYDROCHLORIDE
  7. FLUCONAZOLE [Concomitant]
     Active Substance: FLUCONAZOLE
  8. LEVOFLOXACIN [Concomitant]
     Active Substance: LEVOFLOXACIN
  9. NEUROGEN [CHLORDIAZEPOXIDE;METAMIZOLE SODIUM MONOHYDRATE;THIAMINE HYDR [Concomitant]
  10. PEPCID [Concomitant]
     Active Substance: FAMOTIDINE
  11. IMDUR [Concomitant]
     Active Substance: ISOSORBIDE MONONITRATE
  12. DIGOXIN [Concomitant]
     Active Substance: DIGOXIN
  13. LOPRESSOR [Concomitant]
     Active Substance: METOPROLOL TARTRATE
  14. MAGNESIUM [Concomitant]
     Active Substance: MAGNESIUM
  15. LIPITOR [Concomitant]
     Active Substance: ATORVASTATIN CALCIUM

REACTIONS (6)
  - Febrile neutropenia [Recovered/Resolved]
  - Injury [Recovered/Resolved]
  - Skin necrosis [Recovered/Resolved]
  - Bacterial infection [Recovered/Resolved]
  - Mucosal inflammation [Recovered/Resolved]
  - Rash [Recovered/Resolved]

NARRATIVE: CASE EVENT DATE: 20030705
